FAERS Safety Report 16991002 (Version 2)
Quarter: 2020Q2

REPORT INFORMATION
  Report Type: Spontaneous
  Country: US (occurrence: US)
  Receive Date: 20191104
  Receipt Date: 20200415
  Transmission Date: 20200713
  Serious: No
  Sender: FDA-Public Use
  Company Number: US-SA-2019SA303641

PATIENT
  Sex: Female

DRUGS (12)
  1. IBUPROFEN. [Concomitant]
     Active Substance: IBUPROFEN
     Dosage: UNK
  2. KEVZARA [Suspect]
     Active Substance: SARILUMAB
     Dosage: 150 MG, QOW
     Route: 058
  3. LISINOPRIL. [Concomitant]
     Active Substance: LISINOPRIL
     Dosage: UNK
  4. TRIAMCINOLONE [Concomitant]
     Active Substance: TRIAMCINOLONE
     Dosage: UNK
  5. KETOCONAZOLE. [Concomitant]
     Active Substance: KETOCONAZOLE
     Dosage: UNK
  6. METHOTREXATE. [Concomitant]
     Active Substance: METHOTREXATE
     Dosage: UNK
  7. ECONAZOLE NITRATE. [Concomitant]
     Active Substance: ECONAZOLE NITRATE
     Dosage: UNK
  8. LEVOTHYROXINE SODIUM. [Concomitant]
     Active Substance: LEVOTHYROXINE SODIUM
     Dosage: UNK
  9. SYMBYAX [Concomitant]
     Active Substance: FLUOXETINE HYDROCHLORIDE\OLANZAPINE
     Dosage: UNK
  10. VENTOLIN HFA [Concomitant]
     Active Substance: ALBUTEROL SULFATE
     Dosage: UNK
  11. ROSUVASTATIN CALCIUM. [Concomitant]
     Active Substance: ROSUVASTATIN CALCIUM
     Dosage: UNK
  12. METFORMIN HCL [Concomitant]
     Active Substance: METFORMIN HYDROCHLORIDE
     Dosage: UNK

REACTIONS (2)
  - Dizziness [Recovered/Resolved]
  - Malaise [Unknown]
